FAERS Safety Report 8840106 (Version 4)
Quarter: 2013Q1

REPORT INFORMATION
  Report Type: Report from Study
  Country: US (occurrence: US)
  Receive Date: 20121015
  Receipt Date: 20130207
  Transmission Date: 20140127
  Serious: Yes (Other)
  Sender: FDA-Public Use
  Company Number: US-ROCHE-1105816

PATIENT
  Sex: Male
  Weight: 83.08 kg

DRUGS (8)
  1. ZELBORAF [Suspect]
     Indication: METASTATIC MALIGNANT MELANOMA
     Route: 048
     Dates: start: 201110
  2. ZELBORAF [Suspect]
     Route: 048
     Dates: start: 201111
  3. ZELBORAF [Suspect]
     Route: 048
     Dates: start: 20120123, end: 20121012
  4. ZELBORAF [Suspect]
     Route: 048
     Dates: start: 20120214, end: 20120627
  5. ZELBORAF [Suspect]
     Route: 048
     Dates: start: 20120627
  6. ZOLOFT [Concomitant]
     Indication: FEELING OF RELAXATION
     Route: 048
     Dates: start: 201109
  7. HYDROCHLOROTHIAZIDE [Concomitant]
     Indication: HYPERTENSION
     Route: 048
  8. VALSARTAN [Concomitant]
     Indication: HYPERTENSION

REACTIONS (22)
  - Mole excision [Not Recovered/Not Resolved]
  - Neoplasm malignant [Recovered/Resolved]
  - Squamous cell carcinoma [Recovered/Resolved]
  - Squamous cell carcinoma of skin [Recovered/Resolved]
  - Diarrhoea [Recovering/Resolving]
  - Nodule [Unknown]
  - Acne [Unknown]
  - Rash [Not Recovered/Not Resolved]
  - Skin exfoliation [Not Recovered/Not Resolved]
  - Fatigue [Not Recovered/Not Resolved]
  - Vitamin D decreased [Not Recovered/Not Resolved]
  - Skin papilloma [Not Recovered/Not Resolved]
  - Alopecia [Recovered/Resolved]
  - Sciatica [Recovered/Resolved]
  - Abasia [Recovered/Resolved]
  - Pain [Recovered/Resolved]
  - Decreased appetite [Recovered/Resolved]
  - Hyperkeratosis [Recovering/Resolving]
  - Photosensitivity reaction [Recovering/Resolving]
  - Sunburn [Recovered/Resolved]
  - Fatigue [Recovering/Resolving]
  - Neoplasm skin [Recovering/Resolving]
